FAERS Safety Report 26073649 (Version 1)
Quarter: 2025Q4

REPORT INFORMATION
  Report Type: Spontaneous
  Country: EU (occurrence: EU)
  Receive Date: 20251121
  Receipt Date: 20251121
  Transmission Date: 20260118
  Serious: Yes (Life-Threatening, Hospitalization)
  Sender: ACCORD
  Company Number: None

PATIENT
  Age: 74 Year
  Sex: Female

DRUGS (11)
  1. OXALIPLATIN [Suspect]
     Active Substance: OXALIPLATIN
     Indication: Metastatic bronchial carcinoma
     Dates: start: 20250923, end: 20250923
  2. BISOPROLOL [Concomitant]
     Active Substance: BISOPROLOL
     Indication: Cardiac failure
  3. DAPAGLIFLOZIN [Concomitant]
     Active Substance: DAPAGLIFLOZIN
     Indication: Cardiac failure
     Dosage: STRENGTH: 10 MG
  4. AMIODARONE [Concomitant]
     Active Substance: AMIODARONE
     Indication: Cardiomyopathy
  5. EPLERENONE [Concomitant]
     Active Substance: EPLERENONE
     Indication: Cardiomyopathy
  6. ENTRESTO [Concomitant]
     Active Substance: SACUBITRIL\VALSARTAN
     Indication: Cardiomyopathy
  7. LEVOTHYROXINE [Concomitant]
     Active Substance: LEVOTHYROXINE
     Indication: Thyroid disorder
     Dosage: STRENGTH: 125 MICROGRAMS, SCORED TABLET
  8. ONDANSETRON [Concomitant]
     Active Substance: ONDANSETRON
     Indication: Prophylaxis of nausea and vomiting
  9. SANDOSTATIN [Concomitant]
     Active Substance: OCTREOTIDE ACETATE
     Indication: Metastatic bronchial carcinoma
     Dosage: 30 MG, POWDER AND SOLVENT IN PRE-FILLED SYRINGE FOR PROLONGED-RELEASE I M INJECTION
  10. MAGNESIUM [Concomitant]
     Active Substance: MAGNESIUM
     Indication: Metastatic bronchial carcinoma
     Dosage: STRENGTH: 200 MCG
  11. SKENAN [Concomitant]
     Active Substance: MORPHINE SULFATE
     Indication: Pain
     Dosage: 30 MG, PROLONGED-RELEASE MICROGRANULES IN CAPSULE

REACTIONS (2)
  - Anaphylactic reaction [Recovered/Resolved]
  - Cardio-respiratory arrest [Recovered/Resolved]

NARRATIVE: CASE EVENT DATE: 20250923
